FAERS Safety Report 4959097-2 (Version None)
Quarter: 2006Q1

REPORT INFORMATION
  Report Type: 
  Country: None (occurrence: None)
  Receive Date: 20060330
  Receipt Date: 20060330
  Transmission Date: 20060701
  Serious: Yes (Life-Threatening, Hospitalization, Disabling)
  Sender: FDA-Public Use
  Company Number: None

PATIENT
  Sex: Male

DRUGS (1)
  1. AVASTIN [Suspect]
     Indication: NON-SMALL CELL LUNG CANCER METASTATIC
     Dosage: 1860 MG ONE TIME IV
     Route: 042
     Dates: start: 20050829, end: 20050829

REACTIONS (2)
  - DYSPNOEA [None]
  - TRANSIENT ISCHAEMIC ATTACK [None]
